FAERS Safety Report 22255635 (Version 2)
Quarter: 2023Q2

REPORT INFORMATION
  Report Type: Spontaneous
  Country: US (occurrence: US)
  Receive Date: 20230426
  Receipt Date: 20230621
  Transmission Date: 20230721
  Serious: No
  Sender: FDA-Public Use
  Company Number: US-PFIZER INC-202300167180

PATIENT
  Age: 52 Year
  Sex: Female
  Weight: 89.796 kg

DRUGS (24)
  1. PAXLOVID [Suspect]
     Active Substance: NIRMATRELVIR\RITONAVIR
     Indication: COVID-19 treatment
     Dosage: [PF-07321332 300 MG]/[RITONAVIR 100 MG]; 2X/DAY
     Route: 048
     Dates: start: 20230412, end: 20230416
  2. TYLENOL [Concomitant]
     Active Substance: ACETAMINOPHEN
     Dosage: 1000 MG, 4X/DAY AS NEEDED
     Route: 048
     Dates: start: 20181128
  3. ALBUTEROL SULFATE [Concomitant]
     Active Substance: ALBUTEROL SULFATE
     Dosage: 1 AMPULE EVERY 6 HOURS AS NEEDED
     Route: 048
     Dates: start: 20160524
  4. CELEBREX [Concomitant]
     Active Substance: CELECOXIB
     Dosage: 100 MG, 2X/DAY
     Route: 048
     Dates: start: 20211019
  5. VITAMIN D3 [Concomitant]
     Active Substance: CHOLECALCIFEROL
     Dosage: 1 DF, WEEKLY
     Route: 048
     Dates: start: 20181128
  6. VITAMIN B12 [Concomitant]
     Active Substance: CYANOCOBALAMIN
     Dosage: INJECT 1 ML SOLUTION, MONTHLY
     Dates: start: 20230308
  7. FLEXERIL [Concomitant]
     Active Substance: CYCLOBENZAPRINE HYDROCHLORIDE
     Dosage: 1 TABLET EVERY 8 HOURS AS NEEDED
     Route: 048
     Dates: start: 20230216
  8. BENTYL [Concomitant]
     Active Substance: DICYCLOMINE HYDROCHLORIDE
     Dosage: 10 MG 4 TIMES DAILY PRN
     Route: 048
     Dates: start: 20201112
  9. BENADRYL [Concomitant]
     Active Substance: DIPHENHYDRAMINE HYDROCHLORIDE
     Dosage: (LIQUID)25 MG AS NEEDED. 2 TABLETS AS NEEDED
     Route: 048
  10. FLONASE [Concomitant]
     Active Substance: FLUTICASONE PROPIONATE
     Dosage: SUSPENSION 50 MCG/ACT EACH NARE, 1X/DAY
     Route: 045
  11. INSULIN NOS [Concomitant]
     Active Substance: INSULIN NOS
     Dosage: 1 SYRINGE EVERY 30 DAYS
     Route: 023
     Dates: start: 20211101
  12. SYNTHROID [Concomitant]
     Active Substance: LEVOTHYROXINE SODIUM
     Dosage: 100 UG EVERY MORNING
     Dates: start: 20221212
  13. LEVOXYL [Concomitant]
     Active Substance: LEVOTHYROXINE SODIUM
     Dosage: 100 UG, EVERY MORNING
     Route: 048
     Dates: start: 20221212
  14. LIDODERM [Concomitant]
     Active Substance: LIDOCAINE
     Dosage: 1 PATCH ONTO THE SKIN, LEAVE ON FOR UP TO 12 HOURS AND REMOVE FOR 12 HOURS
     Route: 061
  15. XIIDRA [Concomitant]
     Active Substance: LIFITEGRAST
     Dosage: SOLUTION 1 DROP INTO BOTH EYES, 2X/DAY
     Route: 047
     Dates: start: 20220630
  16. NALOXONE [Concomitant]
     Active Substance: NALOXONE
     Dosage: SOLUTION 1 SPRAY INTO EACH NOSTRIL, REPEAT IN 3 MINUTES IF NO RESPONSE AND SECOND DOSE IS AVAILABLE
     Route: 045
     Dates: start: 20230412
  17. ZOFRAN [Concomitant]
     Active Substance: ONDANSETRON HYDROCHLORIDE
     Dosage: DISSOLVE 1 TABLET BY MOUTH EVERY 8 HOURS AS NEEDED
     Route: 048
     Dates: start: 20230411
  18. PROTONIX [Concomitant]
     Active Substance: PANTOPRAZOLE SODIUM
     Dosage: 1 TABLET, 1X/DAY
     Route: 048
     Dates: start: 20230226
  19. PYRIDIUM [Concomitant]
     Active Substance: PHENAZOPYRIDINE
     Dosage: 200 MG, 3 TIMES DAILY AS NEEDED
     Route: 048
  20. MIRALAX [Concomitant]
     Active Substance: POLYETHYLENE GLYCOL 3350
     Dosage: 17 G, 1X/DAY, MAY BE INCREASED TO TWICE DAILY IF ONGOING PROBLEMS WITH CONSTIPATION
     Route: 048
  21. DELTASONE [Concomitant]
     Active Substance: PREDNISONE
     Indication: Arthritis
     Dosage: 1 TABLET 2 TIMES DAILY AS NEEDED
     Route: 048
     Dates: start: 20211128
  22. DELTASONE [Concomitant]
     Active Substance: PREDNISONE
     Dosage: 1 TABLET EVERYDAY AS NEEDED
     Route: 048
     Dates: start: 20220624
  23. SUDAFED [Concomitant]
     Active Substance: PSEUDOEPHEDRINE HYDROCHLORIDE
     Dosage: 30 MG, DAILY AS NEEDED
     Route: 048
  24. IMITREX [Concomitant]
     Active Substance: SUMATRIPTAN SUCCINATE
     Dosage: 50 MG, DAILY AS NEEDED
     Route: 048
     Dates: start: 20221216

REACTIONS (2)
  - COVID-19 [Recovered/Resolved]
  - Disease recurrence [Recovered/Resolved]

NARRATIVE: CASE EVENT DATE: 20230418
